FAERS Safety Report 6818584-2 (Version None)
Quarter: 2010Q3

REPORT INFORMATION
  Report Type: 
  Country: None (occurrence: None)
  Receive Date: 20100706
  Receipt Date: 20090123
  Transmission Date: 20110219
  Serious: No
  Sender: FDA-Public Use
  Company Number: US-PFIZER INC-2009161688

PATIENT
  Age: 62 Year
  Sex: Female

DRUGS (1)
  1. AZITHROMYCIN [Suspect]
     Dosage: UNK

REACTIONS (4)
  - AGITATION [None]
  - DYSPNOEA [None]
  - INSOMNIA [None]
  - VOMITING [None]
